FAERS Safety Report 11138888 (Version 1)
Quarter: 2015Q2

REPORT INFORMATION
  Report Type: Spontaneous
  Country: US (occurrence: US)
  Receive Date: 20150527
  Receipt Date: 20150527
  Transmission Date: 20150821
  Serious: No
  Sender: FDA-Public Use
  Company Number: US-AMGEN-01050159

PATIENT
  Age: 57 Year
  Sex: Female
  Weight: 68.27 kg

DRUGS (5)
  1. NAPRELAN [Concomitant]
     Active Substance: NAPROXEN SODIUM
     Dosage: UNK UNK, AS NECESSARY
     Dates: start: 19991201
  2. ENBREL [Suspect]
     Active Substance: ETANERCEPT
     Indication: PSORIASIS
  3. ZOCOR [Concomitant]
     Active Substance: SIMVASTATIN
     Dosage: 500 MG, QD
  4. ENBREL [Suspect]
     Active Substance: ETANERCEPT
     Indication: RHEUMATOID ARTHRITIS
     Dosage: 25 MG, 2 TIMES/WK
     Route: 058
     Dates: start: 20001003
  5. CALTRATE WITH VITAMIN D [Concomitant]
     Active Substance: CALCIUM CARBONATE\VITAMIN D
     Dosage: UNK

REACTIONS (3)
  - Injection site reaction [Recovering/Resolving]
  - Injection site pruritus [Not Recovered/Not Resolved]
  - Injection site erythema [Not Recovered/Not Resolved]

NARRATIVE: CASE EVENT DATE: 200010
